FAERS Safety Report 23055735 (Version 1)
Quarter: 2023Q4

REPORT INFORMATION
  Report Type: Spontaneous
  Country: FR (occurrence: FR)
  Receive Date: 20231011
  Receipt Date: 20231011
  Transmission Date: 20240110
  Serious: Yes (Life-Threatening, Other)
  Sender: FDA-Public Use
  Company Number: FR-AFSSAPS-AVPA2023000209

PATIENT
  Age: 28 Year
  Sex: Male
  Weight: 60 kg

DRUGS (1)
  1. MORPHINE [Suspect]
     Active Substance: MORPHINE
     Indication: Product used for unknown indication
     Dosage: 200 MG
     Route: 040

REACTIONS (5)
  - Altered state of consciousness [Recovered/Resolved]
  - Drug abuse [Unknown]
  - Intentional product misuse [Unknown]
  - Coma [Recovered/Resolved]
  - Respiratory depression [Recovered/Resolved]

NARRATIVE: CASE EVENT DATE: 20230317
